FAERS Safety Report 16881164 (Version 1)
Quarter: 2019Q4

REPORT INFORMATION
  Report Type: Spontaneous
  Country: CN (occurrence: CN)
  Receive Date: 20191003
  Receipt Date: 20191003
  Transmission Date: 20200122
  Serious: Yes (Other)
  Sender: FDA-Public Use
  Company Number: CN-PFIZER INC-2019421581

PATIENT
  Age: 59 Year
  Sex: Male
  Weight: 60 kg

DRUGS (14)
  1. CEFOPERAZONE SODIUM AND SULBACTAM SODIUM [Concomitant]
     Active Substance: CEFOPERAZONE SODIUM\SULBACTAM SODIUM
     Indication: ANTI-INFECTIVE THERAPY
     Dosage: 3 G, 3X/DAY
     Dates: start: 20190505
  2. SULBACTAM [Concomitant]
     Active Substance: SULBACTAM
     Indication: ANTI-INFECTIVE THERAPY
     Dosage: 2 G, 3X/DAY
     Dates: start: 20190505
  3. CASPOFUNGIN [Concomitant]
     Active Substance: CASPOFUNGIN
     Indication: ASPERGILLUS INFECTION
     Dosage: 50 MG, 1X/DAY
     Dates: start: 20190413
  4. ZYVOX [Suspect]
     Active Substance: LINEZOLID
     Indication: ANTI-INFECTIVE THERAPY
     Dosage: 600.000 MG, 2X/DAY
     Route: 048
     Dates: start: 20190503, end: 20190509
  5. POLYMYXIN B. [Concomitant]
     Active Substance: POLYMYXIN B
     Indication: KLEBSIELLA INFECTION
     Dosage: 750,000 IU (UNITS), 2X/DAY (ONCE EVERY 12 HOURS)
     Dates: start: 20190413, end: 20190425
  6. MEROPENEM. [Concomitant]
     Active Substance: MEROPENEM
     Indication: KLEBSIELLA INFECTION
     Dosage: 1 G, 1X/DAY
     Dates: start: 20190413, end: 20190425
  7. ZYVOX [Suspect]
     Active Substance: LINEZOLID
     Indication: INFECTION
     Dosage: 600 MG, 2X/DAY (ONCE EVERY 12 HOURS)
     Route: 041
     Dates: start: 20190426, end: 20190503
  8. VFEND [Suspect]
     Active Substance: VORICONAZOLE
     Indication: BRONCHOPULMONARY ASPERGILLOSIS
     Dosage: 400 MG, 2X/DAY (ONCE EVERY 12 HOURS FOR THE FIRST 24 HOURS; LOADING DOSE)
     Route: 041
     Dates: start: 20190401, end: 201904
  9. TIGECYCLINE. [Concomitant]
     Active Substance: TIGECYCLINE
     Indication: KLEBSIELLA INFECTION
     Dosage: 75 MG, 2X/DAY (ONCE EVERY 12 HOURS)
     Dates: start: 20190413, end: 20190425
  10. CILASTATIN SODIUM/IMIPENEM [Concomitant]
     Indication: ANTI-INFECTIVE THERAPY
     Dosage: 1 G, 3X/DAY (EVERY 8 HRS)
     Dates: start: 201904
  11. VFEND [Suspect]
     Active Substance: VORICONAZOLE
     Dosage: 200 MG, 2X/DAY (MAINTENANCE DOSE)
     Route: 041
     Dates: start: 201904, end: 20190403
  12. VFEND [Suspect]
     Active Substance: VORICONAZOLE
     Dosage: 200 MG, 2X/DAY
     Route: 041
     Dates: start: 20190413, end: 201904
  13. YA LE [POLYMYXIN B] [Suspect]
     Active Substance: POLYMYXIN B
     Indication: PNEUMONIA
     Dosage: 75 MG, 2X/DAY
     Route: 041
     Dates: start: 20190505, end: 20190511
  14. AVIBACTAM/CEFTAZIDIME [Concomitant]
     Indication: ANTI-INFECTIVE THERAPY
     Dosage: 2.5 G, 3X/DAY (EVERY 8 HOURS)
     Dates: start: 201904

REACTIONS (6)
  - Paraesthesia oral [Recovering/Resolving]
  - Hypoaesthesia [Recovering/Resolving]
  - Hallucination, visual [Recovering/Resolving]
  - Platelet count decreased [Recovering/Resolving]
  - Drug level increased [Unknown]
  - Drug ineffective [Unknown]

NARRATIVE: CASE EVENT DATE: 2019
